FAERS Safety Report 4293060-2 (Version None)
Quarter: 2004Q1

REPORT INFORMATION
  Report Type: 
  Country: None (occurrence: None)
  Receive Date: 20040210
  Receipt Date: 20021114
  Transmission Date: 20041129
  Serious: Yes (Hospitalization)
  Sender: FDA-Public Use
  Company Number: J081-002-001182

PATIENT
  Age: 80 Year
  Sex: Female

DRUGS (2)
  1. ARICEPT [Suspect]
     Indication: DEMENTIA ALZHEIMER'S TYPE
     Dosage: 3 MG, 1 IN 1 D, PER ORAL ; 5 MG, 1 IN 1 D, PER ORAL
     Route: 048
     Dates: start: 20010214, end: 20010220
  2. ARICEPT [Suspect]
     Indication: DEMENTIA ALZHEIMER'S TYPE
     Dosage: 3 MG, 1 IN 1 D, PER ORAL ; 5 MG, 1 IN 1 D, PER ORAL
     Route: 048
     Dates: start: 20010221, end: 20021003

REACTIONS (4)
  - COMA [None]
  - HEPATIC ENCEPHALOPATHY [None]
  - HEPATITIS [None]
  - HYPERAMMONAEMIA [None]
